FAERS Safety Report 16687021 (Version 1)
Quarter: 2019Q3

REPORT INFORMATION
  Report Type: Report from Study
  Country: US (occurrence: US)
  Receive Date: 20190809
  Receipt Date: 20190809
  Transmission Date: 20191004
  Serious: Yes (Other)
  Sender: FDA-Public Use
  Company Number: US-BIOGEN-2019BI00772286

PATIENT
  Sex: Male

DRUGS (2)
  1. TECFIDERA [Suspect]
     Active Substance: DIMETHYL FUMARATE
     Indication: MULTIPLE SCLEROSIS
     Route: 065
  2. TECFIDERA [Suspect]
     Active Substance: DIMETHYL FUMARATE
     Route: 048
     Dates: start: 201905

REACTIONS (4)
  - Urine odour abnormal [Not Recovered/Not Resolved]
  - Myocardial infarction [Recovered/Resolved]
  - Flushing [Not Recovered/Not Resolved]
  - Chromaturia [Not Recovered/Not Resolved]
